FAERS Safety Report 8255939-6 (Version None)
Quarter: 2012Q2

REPORT INFORMATION
  Report Type: 
  Country: None (occurrence: None)
  Receive Date: 20120403
  Receipt Date: 20120320
  Transmission Date: 20120825
  Serious: Yes (Hospitalization, Other)
  Sender: FDA-Public Use
  Company Number: US-BAYER-2011-042066

PATIENT
  Age: 22 Year
  Sex: Female
  Weight: 54 kg

DRUGS (1)
  1. YAZ [Suspect]
     Indication: ORAL CONTRACEPTION
     Dosage: UNK
     Dates: start: 20070101, end: 20071013

REACTIONS (12)
  - DEEP VEIN THROMBOSIS [None]
  - INJURY [None]
  - GENERAL PHYSICAL HEALTH DETERIORATION [None]
  - HEART INJURY [None]
  - LUNG DISORDER [None]
  - PAIN [None]
  - PULMONARY EMBOLISM [None]
  - ANXIETY [None]
  - DYSPNOEA [None]
  - PAIN IN EXTREMITY [None]
  - CHEST PAIN [None]
  - EMOTIONAL DISTRESS [None]
